FAERS Safety Report 9942194 (Version 2)
Quarter: 2014Q1

REPORT INFORMATION
  Report Type: Report from Study
  Country: US (occurrence: US)
  Receive Date: 20140303
  Receipt Date: 20140303
  Transmission Date: 20141002
  Serious: No
  Sender: FDA-Public Use
  Company Number: US-ABBVIE-12P-163-1024172-00

PATIENT
  Age: 66 Year
  Sex: Female

DRUGS (6)
  1. HUMIRA [Suspect]
     Indication: CROHN^S DISEASE
     Dosage: LOADING DOSE
     Route: 058
     Dates: start: 20121212, end: 20121226
  2. HUMIRA [Suspect]
  3. AMLODIPINE [Concomitant]
     Indication: HYPERTENSION
     Dosage: 5MG DAILY
  4. LEVOTHYROXINE [Concomitant]
     Indication: HYPOTHYROIDISM
     Dosage: 100MCG DAILY
  5. HCTZ [Concomitant]
     Indication: HYPERTENSION
     Dosage: 37.5/25MG
  6. GENERIC PRILOSEC [Concomitant]
     Indication: BARRETT^S OESOPHAGUS
     Dosage: 20MG DAILY

REACTIONS (1)
  - Bronchitis [Not Recovered/Not Resolved]
